FAERS Safety Report 12254008 (Version 1)
Quarter: 2016Q2

REPORT INFORMATION
  Report Type: Spontaneous
  Country: US (occurrence: US)
  Receive Date: 20160411
  Receipt Date: 20160411
  Transmission Date: 20160815
  Serious: Yes (Hospitalization)
  Sender: FDA-Public Use
  Company Number: US-TEVA-650236USA

PATIENT
  Age: 50 Year
  Sex: Female
  Weight: 48.58 kg

DRUGS (2)
  1. PHENERGAN [Concomitant]
     Active Substance: PROMETHAZINE HYDROCHLORIDE
  2. SYNRIBO [Suspect]
     Active Substance: OMACETAXINE MEPESUCCINATE
     Indication: CHRONIC MYELOID LEUKAEMIA
     Dosage: HOME ADMINISTRATION
     Dates: start: 20160317

REACTIONS (2)
  - Asthenia [Unknown]
  - Choking sensation [Unknown]

NARRATIVE: CASE EVENT DATE: 20160404
